FAERS Safety Report 20701511 (Version 6)
Quarter: 2022Q3

REPORT INFORMATION
  Report Type: Spontaneous
  Country: FR (occurrence: FR)
  Receive Date: 20220412
  Receipt Date: 20220908
  Transmission Date: 20221026
  Serious: Yes (Life-Threatening, Hospitalization, Other)
  Sender: FDA-Public Use
  Company Number: FR-SA-2017SA032108

PATIENT
  Sex: Female

DRUGS (34)
  1. REVLIMID [Suspect]
     Active Substance: LENALIDOMIDE
     Indication: Product used for unknown indication
     Dosage: 5 MG, QD
     Route: 065
  2. THALIDOMIDE [Suspect]
     Active Substance: THALIDOMIDE
     Indication: Chronic cutaneous lupus erythematosus
     Dosage: 50 MG, QD
     Route: 048
  3. THALIDOMIDE [Suspect]
     Active Substance: THALIDOMIDE
     Dosage: 100 MG, QD
     Route: 048
     Dates: start: 20160613
  4. THALIDOMIDE [Suspect]
     Active Substance: THALIDOMIDE
     Dosage: 28 TABLETS,1X
     Route: 048
     Dates: start: 20161127, end: 20161127
  5. THALIDOMIDE [Suspect]
     Active Substance: THALIDOMIDE
     Dosage: 100 MG
     Route: 048
  6. THALIDOMIDE [Suspect]
     Active Substance: THALIDOMIDE
     Dosage: 50 MG, QD
     Route: 048
  7. THALIDOMIDE [Suspect]
     Active Substance: THALIDOMIDE
     Dosage: 1 DF,UNK
     Route: 048
     Dates: start: 20160613
  8. THALIDOMIDE [Suspect]
     Active Substance: THALIDOMIDE
     Dosage: 50 MG QOD
     Route: 065
     Dates: start: 20160928
  9. NIFEDIPINE [Suspect]
     Active Substance: NIFEDIPINE
     Indication: Product used for unknown indication
     Dosage: LP 30 1 PER DAY
     Route: 065
  10. PLAQUENIL [Suspect]
     Active Substance: HYDROXYCHLOROQUINE SULFATE
     Indication: Hypertension
     Dosage: 200 MG, BID
     Route: 048
     Dates: start: 201512, end: 201606
  11. PLAQUENIL [Suspect]
     Active Substance: HYDROXYCHLOROQUINE SULFATE
     Indication: Chronic cutaneous lupus erythematosus
     Dosage: 2 DF,QD
     Route: 048
     Dates: start: 201512
  12. PLAQUENIL [Suspect]
     Active Substance: HYDROXYCHLOROQUINE SULFATE
     Dosage: 45 DF,1X
     Route: 048
     Dates: start: 20161127, end: 20161127
  13. ALPRAZOLAM [Concomitant]
     Active Substance: ALPRAZOLAM
     Indication: Product used for unknown indication
     Dosage: 0.5 DF, QD
     Route: 065
     Dates: start: 201611
  14. ALPRAZOLAM [Concomitant]
     Active Substance: ALPRAZOLAM
     Dosage: 30 DF, 1X
     Route: 065
     Dates: start: 20161127, end: 20161127
  15. ALPRAZOLAM [Concomitant]
     Active Substance: ALPRAZOLAM
  16. ALPRAZOLAM [Concomitant]
     Active Substance: ALPRAZOLAM
     Dosage: UNK
  17. ALPRAZOLAM [Concomitant]
     Active Substance: ALPRAZOLAM
     Dosage: UNK UNK,UNK
     Route: 065
  18. ALPRAZOLAM [Concomitant]
     Active Substance: ALPRAZOLAM
     Dosage: UNK UNK,UNK
     Route: 065
  19. ALPRAZOLAM [Concomitant]
     Active Substance: ALPRAZOLAM
     Dosage: UNK UNK,UNK
     Route: 065
  20. ALPRAZOLAM [Concomitant]
     Active Substance: ALPRAZOLAM
     Dosage: UNK UNK,UNK
     Route: 065
  21. CANNABIS SATIVA SUBSP. INDICA TOP [Concomitant]
     Active Substance: CANNABIS SATIVA SUBSP. INDICA TOP
     Indication: Product used for unknown indication
     Route: 065
  22. XANAX [Concomitant]
     Active Substance: ALPRAZOLAM
     Indication: Product used for unknown indication
     Dosage: 1 TABLET AT 8:00 , 1 TABLET AT 12:00, 1 TABLET AT 19:00
     Route: 065
  23. XANAX [Concomitant]
     Active Substance: ALPRAZOLAM
     Dosage: 1 TABLET AT 8:00HOUR , 1 TABLET AT 12:00, 1 TABLET AT 19:00
     Route: 065
  24. XANAX [Concomitant]
     Active Substance: ALPRAZOLAM
     Route: 065
  25. XANAX [Concomitant]
     Active Substance: ALPRAZOLAM
     Dosage: 1 TABLET AT 8:00 , 1 TABLET AT 12:00, 1 TABLET AT 19:00
     Route: 065
  26. DUPHALAC [Concomitant]
     Active Substance: LACTULOSE
     Indication: Product used for unknown indication
     Dosage: 1 SACHET AT 8 :00, 1 SACHET AT 12 :00 , 1 SACHET AT 19 :00
     Route: 065
  27. DUPHALAC [Concomitant]
     Active Substance: LACTULOSE
     Dosage: 1 SACHET AT 8 :00, 1 SACHET AT 12 :00 , 1 SACHET AT 19 :00
     Route: 065
  28. DUPHALAC [Concomitant]
     Active Substance: LACTULOSE
     Dosage: 1 SACHET AT 8 :00, 1 SACHET AT 12 :00 , 1 SACHET AT 19 :00
     Route: 065
  29. IMOVANE [Concomitant]
     Active Substance: ZOPICLONE
     Indication: Product used for unknown indication
     Dosage: 1 COMP / TABLET)
     Route: 065
  30. RISPERDAL [Concomitant]
     Active Substance: RISPERIDONE
     Indication: Product used for unknown indication
     Dosage: 1 TABLET AT 8:00, 1 TABLET AT 19:00
     Route: 065
  31. ASPIRIN [Concomitant]
     Active Substance: ASPIRIN
     Indication: Product used for unknown indication
     Dosage: 100 MG/DAY
     Route: 065
  32. MINERAL OIL [Concomitant]
     Active Substance: MINERAL OIL
     Indication: Product used for unknown indication
     Dosage: LANSOYL SINGLE DOSE 1 DOSE AT 8:00, 1 DOSE AT 12:00, 1 DOSE AT 19:00
     Route: 065
  33. TROPATEPINE HYDROCHLORIDE [Concomitant]
     Active Substance: TROPATEPINE HYDROCHLORIDE
     Indication: Product used for unknown indication
     Dosage: 1 TABLET AT 8:00, 1 TABLET AT 19:00
     Route: 065
  34. ACETAMINOPHEN [Concomitant]
     Active Substance: ACETAMINOPHEN
     Indication: Product used for unknown indication
     Dosage: 1G/6H IF REQUIRED
     Route: 065

REACTIONS (43)
  - Drug intolerance [Unknown]
  - Sleep apnoea syndrome [Unknown]
  - Major depression [Unknown]
  - Suicidal ideation [Unknown]
  - Toxicity to various agents [Unknown]
  - Diarrhoea [Unknown]
  - Back pain [Unknown]
  - Persecutory delusion [Unknown]
  - Headache [Unknown]
  - Raynaud^s phenomenon [Unknown]
  - Frostbite [Recovering/Resolving]
  - Systemic lupus erythematosus [Unknown]
  - Nightmare [Unknown]
  - Sleep disorder [Unknown]
  - Weight decreased [Unknown]
  - Rash [Unknown]
  - Malaise [Unknown]
  - Peripheral coldness [Recovering/Resolving]
  - Hallucination, auditory [Unknown]
  - Loss of consciousness [Unknown]
  - Fatigue [Unknown]
  - Cardiac arrest [Unknown]
  - Condition aggravated [Unknown]
  - Hallucination [Unknown]
  - Amnesia [Unknown]
  - Chillblains [Unknown]
  - Arthralgia [Unknown]
  - Suicide attempt [Unknown]
  - Emotional distress [Unknown]
  - Rash erythematous [Unknown]
  - Cyanosis [Unknown]
  - Mental disorder [Unknown]
  - Overdose [Unknown]
  - Psychomotor retardation [Unknown]
  - Depressed mood [Unknown]
  - Asthenia [Unknown]
  - Chronic cutaneous lupus erythematosus [Unknown]
  - Foot fracture [Unknown]
  - Depression [Recovering/Resolving]
  - Delirium [Unknown]
  - Psychotic disorder [Unknown]
  - Unevaluable event [Unknown]
  - Intentional product use issue [Unknown]

NARRATIVE: CASE EVENT DATE: 20160301
